FAERS Safety Report 13867865 (Version 4)
Quarter: 2018Q2

REPORT INFORMATION
  Report Type: Report from Study
  Country: US (occurrence: US)
  Receive Date: 20170814
  Receipt Date: 20180402
  Transmission Date: 20180711
  Serious: Yes (Death)
  Sender: FDA-Public Use
  Company Number: US-ACADIA PHARMACEUTICALS INC.-ACA-2017-003631

PATIENT
  Sex: Male

DRUGS (4)
  1. CARBIDOPA AND LEVODOPA [Concomitant]
     Active Substance: CARBIDOPA\LEVODOPA
     Indication: PRODUCT USED FOR UNKNOWN INDICATION
     Route: 065
  2. NUPLAZID [Suspect]
     Active Substance: PIMAVANSERIN TARTRATE
     Indication: DELUSION
  3. NUPLAZID [Suspect]
     Active Substance: PIMAVANSERIN TARTRATE
     Indication: HALLUCINATION
     Dosage: 34 MG, UNK
     Route: 048
  4. NUPLAZID [Suspect]
     Active Substance: PIMAVANSERIN TARTRATE
     Indication: PARKINSON^S DISEASE PSYCHOSIS
     Dosage: 1 DF, QD
     Route: 048
     Dates: start: 20170522

REACTIONS (8)
  - Delusional perception [Recovered/Resolved]
  - Gait disturbance [Unknown]
  - Intentional underdose [Unknown]
  - Hallucination [Recovered/Resolved]
  - Parkinson^s disease [Fatal]
  - Psychotic disorder [Recovered/Resolved]
  - Abnormal behaviour [Recovered/Resolved]
  - Confusional state [Unknown]
